FAERS Safety Report 9783370 (Version 1)
Quarter: 2013Q4

REPORT INFORMATION
  Report Type: Spontaneous
  Country: US (occurrence: US)
  Receive Date: 20131226
  Receipt Date: 20131226
  Transmission Date: 20140711
  Serious: Yes (Hospitalization)
  Sender: FDA-Public Use
  Company Number: US-BAYER-2013-156692

PATIENT
  Age: 42 Year
  Sex: Female
  Weight: 55 kg

DRUGS (17)
  1. YAZ [Suspect]
     Dosage: UNK
  2. ADVIL [Concomitant]
     Dosage: 400 MG, EVERY 4 TO 6 HOURS
     Route: 048
  3. PROVENTIL [Concomitant]
     Dosage: UNK
  4. ZESTRIL [Concomitant]
     Indication: HYPERTENSION
     Dosage: 5 MG, DAILY
     Route: 048
  5. CLINDAMYCIN [Concomitant]
     Dosage: 300, 2, TID (THREE TIMES DAILY)
     Route: 048
  6. PHENERGAN [Concomitant]
     Dosage: UNK
  7. LORTAB [Concomitant]
     Indication: PAIN
     Dosage: 5/500, BID (TWICE DAILY)
     Route: 048
  8. NAPROXEN SODIUM [Concomitant]
     Indication: HEADACHE
     Dosage: 500 [UNITS NOT SPECIFIED], BID
     Route: 048
  9. TEGRETOL [Concomitant]
     Dosage: 100 MG, BID, RECENTLY STARTED
     Route: 048
  10. IRON [Concomitant]
     Dosage: UNK UNK, QD (DAILY)
     Route: 048
  11. ATIVAN [Concomitant]
     Dosage: UNK
  12. MIDRIN [Concomitant]
     Dosage: UNK
  13. TORADOL [Concomitant]
     Dosage: UNK
  14. CEREBYX [Concomitant]
     Dosage: UNK
  15. DILANTIN [Concomitant]
     Dosage: UNK
  16. PEPCID [Concomitant]
     Dosage: UNK
  17. NIFEREX [Concomitant]
     Dosage: UNK

REACTIONS (2)
  - Superior sagittal sinus thrombosis [None]
  - Transverse sinus thrombosis [None]
